FAERS Safety Report 7170841-9 (Version None)
Quarter: 2010Q4

REPORT INFORMATION
  Report Type: 
  Country: None (occurrence: None)
  Receive Date: 20101206
  Receipt Date: 20101122
  Transmission Date: 20110411
  Serious: Yes (Hospitalization)
  Sender: FDA-Public Use
  Company Number: 2010P1002892

PATIENT
  Age: 7 Month
  Sex: Female

DRUGS (7)
  1. LORAZEPAM (NO PREF. NAME) [Suspect]
     Indication: SEDATION
  2. FENTANYL [Suspect]
     Indication: SEDATION
  3. HYDROMORPHONE (NO PREF. NAME) [Suspect]
     Indication: SEDATION
  4. PENTOBARBITAL (NO PREF. NAME) [Suspect]
     Indication: SEDATION
  5. DIPHENHYDRAMINE (NO PREF. NAME) [Suspect]
     Indication: SEDATION
  6. PROPOFOL [Suspect]
     Indication: SEDATION
  7. PHENOBARBITAL (NO PREF. NAME) [Suspect]
     Indication: SEDATION

REACTIONS (23)
  - AGITATION [None]
  - AMNESIA [None]
  - APNOEA [None]
  - CEREBRAL ATROPHY [None]
  - CONDITION AGGRAVATED [None]
  - DELIRIUM [None]
  - DEVELOPMENTAL DELAY [None]
  - DRUG WITHDRAWAL SYNDROME [None]
  - DYSKINESIA [None]
  - EXTRAPYRAMIDAL DISORDER [None]
  - FACE OEDEMA [None]
  - HEPATIC ENZYME INCREASED [None]
  - HYPOXIA [None]
  - INJURY [None]
  - MOANING [None]
  - NEUROTOXICITY [None]
  - PAIN [None]
  - RESPIRATORY DISTRESS [None]
  - SCREAMING [None]
  - SLEEP PHASE RHYTHM DISTURBANCE [None]
  - TACHYCARDIA [None]
  - THROMBOCYTOPENIA [None]
  - TREATMENT NONCOMPLIANCE [None]
